FAERS Safety Report 5859513-8 (Version None)
Quarter: 2008Q3

REPORT INFORMATION
  Report Type: 
  Country: None (occurrence: None)
  Receive Date: 20080827
  Receipt Date: 20080822
  Transmission Date: 20090109
  Serious: Yes (Hospitalization)
  Sender: FDA-Public Use
  Company Number: A0731243A

PATIENT
  Age: 60 Year
  Sex: Female
  Weight: 56.8 kg

DRUGS (10)
  1. AVANDIA [Suspect]
     Dosage: 4MG TWICE PER DAY
     Route: 048
     Dates: start: 20060106, end: 20070810
  2. GLUCOPHAGE [Concomitant]
     Dates: start: 19980101
  3. METFORMIN HCL [Concomitant]
     Dates: start: 19980101
  4. DIABETA [Concomitant]
     Dates: start: 20060101, end: 20070101
  5. ATARAX [Concomitant]
  6. SYNTHROID [Concomitant]
  7. ZANAFLEX [Concomitant]
  8. LORTAB [Concomitant]
  9. LISINOPRIL [Concomitant]
  10. TOPAMAX [Concomitant]

REACTIONS (4)
  - CARDIOMYOPATHY [None]
  - INJURY [None]
  - MYOCARDIAL INFARCTION [None]
  - PAIN [None]
